FAERS Safety Report 7327240-6 (Version None)
Quarter: 2011Q1

REPORT INFORMATION
  Report Type: 
  Country: None (occurrence: None)
  Receive Date: 20110302
  Receipt Date: 20110301
  Transmission Date: 20110831
  Serious: Yes (Hospitalization)
  Sender: FDA-Public Use
  Company Number: US-ABBOTT-11P-163-0701929-00

PATIENT
  Sex: Male
  Weight: 55.388 kg

DRUGS (1)
  1. HUMIRA [Suspect]
     Indication: CROHN'S DISEASE
     Dates: end: 20110204

REACTIONS (2)
  - IVTH NERVE PARALYSIS [None]
  - MENINGITIS [None]
